FAERS Safety Report 6139987-8 (Version None)
Quarter: 2009Q2

REPORT INFORMATION
  Report Type: 
  Country: None (occurrence: None)
  Receive Date: 20090401
  Receipt Date: 20090320
  Transmission Date: 20091009
  Serious: Yes (Hospitalization)
  Sender: FDA-Public Use
  Company Number: FR-PFIZER INC-2009188140

PATIENT

DRUGS (13)
  1. LYRICA [Suspect]
     Indication: NEUROPATHY PERIPHERAL
     Route: 048
     Dates: end: 20081001
  2. TIOTROPIUM [Concomitant]
  3. CLONAZEPAM [Concomitant]
     Dosage: 8 DROPS 3X/DAY
     Route: 048
  4. ACETYLSALICYLATE LYSINE [Concomitant]
     Dosage: 75 MG, 1X/DAY
     Route: 048
  5. RAMIPRIL [Concomitant]
     Dosage: 1.25 MG, 1X/DAY
     Route: 048
  6. PRAVASTATIN SODIUM [Concomitant]
     Dosage: 20 MG, 1X/DAY
     Route: 048
  7. PRAZEPAM [Concomitant]
     Dosage: 10 MG, 1X/DAY
     Route: 048
  8. FOLIC ACID [Concomitant]
     Dosage: UNK
     Route: 048
     Dates: start: 20080101
  9. ESCITALOPRAM OXALATE [Concomitant]
     Route: 048
  10. RABEPRAZOLE [Concomitant]
     Route: 048
  11. ZOLPIDEM TARTRATE [Concomitant]
     Dosage: 1 DF, 1X/DAY
     Route: 048
  12. ISPAGHULA [Concomitant]
     Route: 048
  13. ALVERINE CITRATE [Concomitant]
     Route: 048

REACTIONS (4)
  - BALANCE DISORDER [None]
  - FALL [None]
  - OEDEMA PERIPHERAL [None]
  - WEIGHT INCREASED [None]
